FAERS Safety Report 12701340 (Version 1)
Quarter: 2016Q3

REPORT INFORMATION
  Report Type: Spontaneous
  Country: TW (occurrence: TW)
  Receive Date: 20160831
  Receipt Date: 20160831
  Transmission Date: 20161109
  Serious: Yes (Other)
  Sender: FDA-Public Use
  Company Number: TW-SHIRE-TW201611597

PATIENT
  Age: 38 Year
  Sex: Male

DRUGS (1)
  1. ELAPRASE [Suspect]
     Active Substance: IDURSULFASE
     Indication: MUCOPOLYSACCHARIDOSIS II
     Dosage: UNK, UNKNOWN
     Route: 041

REACTIONS (7)
  - Cerebrovascular accident [Unknown]
  - Cerebral atrophy [Unknown]
  - Fall [Recovered/Resolved]
  - Brain oedema [Unknown]
  - Craniocerebral injury [Unknown]
  - Disease progression [Unknown]
  - Activities of daily living impaired [Unknown]

NARRATIVE: CASE EVENT DATE: 20160809
